FAERS Safety Report 4336499-9 (Version None)
Quarter: 2004Q2

REPORT INFORMATION
  Report Type: 
  Country: None (occurrence: None)
  Receive Date: 20040412
  Receipt Date: 20040402
  Transmission Date: 20050107
  Serious: Yes (Disabling)
  Sender: FDA-Public Use
  Company Number: 200413914GDDC

PATIENT
  Age: 51 Year
  Sex: Male

DRUGS (4)
  1. AMARYL [Suspect]
     Indication: DIABETES MELLITUS
     Route: 048
     Dates: start: 20040212, end: 20040330
  2. METFORMIN HCL [Concomitant]
     Route: 048
     Dates: start: 19990101
  3. CLARITHROMYCIN [Concomitant]
     Indication: SINUSITIS
     Route: 048
     Dates: start: 20040211, end: 20040220
  4. ACEPRAX [Concomitant]
     Indication: ANXIETY
     Route: 048
     Dates: start: 20020101

REACTIONS (4)
  - BLINDNESS [None]
  - DIABETIC RETINOPATHY [None]
  - MACULAR OEDEMA [None]
  - RETINAL OEDEMA [None]
